FAERS Safety Report 24814407 (Version 1)
Quarter: 2025Q1

REPORT INFORMATION
  Report Type: Spontaneous
  Country: CH (occurrence: CH)
  Receive Date: 20250107
  Receipt Date: 20250107
  Transmission Date: 20250409
  Serious: Yes (Life-Threatening, Hospitalization, Other)
  Sender: ACCORD
  Company Number: CH-MLMSERVICE-20241223-PI314603-00082-1

PATIENT
  Age: 81 Year
  Sex: Male

DRUGS (4)
  1. CARBOPLATIN [Suspect]
     Active Substance: CARBOPLATIN
     Indication: Transitional cell carcinoma
  2. GEMCITABINE [Suspect]
     Active Substance: GEMCITABINE
     Indication: Transitional cell carcinoma
  3. GEMCITABINE [Suspect]
     Active Substance: GEMCITABINE
     Indication: Metastases to bone
  4. CARBOPLATIN [Suspect]
     Active Substance: CARBOPLATIN
     Indication: Metastases to bone

REACTIONS (6)
  - Haematotoxicity [Unknown]
  - Pancytopenia [Unknown]
  - Listeriosis [Recovered/Resolved]
  - Listeria encephalitis [Recovered/Resolved]
  - Meningitis listeria [Recovered/Resolved]
  - Off label use [Unknown]
